FAERS Safety Report 13805771 (Version 1)
Quarter: 2017Q3

REPORT INFORMATION
  Report Type: Spontaneous
  Country: CA (occurrence: CA)
  Receive Date: 20170728
  Receipt Date: 20170728
  Transmission Date: 20171127
  Serious: Yes (Hospitalization)
  Sender: FDA-Public Use
  Company Number: CA-ABBVIE-17K-028-2051819-00

PATIENT
  Sex: Female

DRUGS (4)
  1. ORENCIA [Concomitant]
     Active Substance: ABATACEPT
     Indication: PRODUCT USED FOR UNKNOWN INDICATION
  2. METHOTREXATE. [Suspect]
     Active Substance: METHOTREXATE
     Indication: RHEUMATOID ARTHRITIS
     Route: 065
  3. HUMIRA [Suspect]
     Active Substance: ADALIMUMAB
     Indication: RHEUMATOID ARTHRITIS
     Route: 058
  4. RITUXAN [Suspect]
     Active Substance: RITUXIMAB
     Indication: RHEUMATOID ARTHRITIS
     Route: 042

REACTIONS (9)
  - Drug effect decreased [Unknown]
  - Neck pain [Unknown]
  - Rash [Unknown]
  - Musculoskeletal pain [Unknown]
  - Weight decreased [Unknown]
  - Arthralgia [Unknown]
  - Drug ineffective [Unknown]
  - Nausea [Unknown]
  - Pain in extremity [Unknown]
